FAERS Safety Report 13374866 (Version 1)
Quarter: 2017Q1

REPORT INFORMATION
  Report Type: Report from Study
  Country: US (occurrence: US)
  Receive Date: 20170327
  Receipt Date: 20170327
  Transmission Date: 20170429
  Serious: Yes (Hospitalization)
  Sender: FDA-Public Use
  Company Number: US-VIFOR (INTERNATIONAL) INC.-VIT-2017-02944

PATIENT
  Age: 73 Year
  Sex: Female

DRUGS (5)
  1. NEXIUM [Concomitant]
     Active Substance: ESOMEPRAZOLE MAGNESIUM
  2. METOPROLOL. [Concomitant]
     Active Substance: METOPROLOL
  3. VYTORIN [Concomitant]
     Active Substance: EZETIMIBE\SIMVASTATIN
  4. LISINOPRIL. [Concomitant]
     Active Substance: LISINOPRIL
  5. VELTASSA [Suspect]
     Active Substance: PATIROMER
     Indication: BLOOD POTASSIUM INCREASED
     Route: 048
     Dates: start: 20160906, end: 201702

REACTIONS (2)
  - Anaemia [Unknown]
  - Constipation [Unknown]

NARRATIVE: CASE EVENT DATE: 201702
